FAERS Safety Report 10189434 (Version 1)
Quarter: 2014Q2

REPORT INFORMATION
  Report Type: Spontaneous
  Country: US (occurrence: US)
  Receive Date: 20140522
  Receipt Date: 20140522
  Transmission Date: 20141212
  Serious: Yes (Hospitalization)
  Sender: FDA-Public Use
  Company Number: US-TEVA-482372USA

PATIENT
  Sex: Female

DRUGS (3)
  1. NORTRIPTYLINE [Suspect]
     Indication: ANTIDEPRESSANT THERAPY
  2. COPAXONE [Concomitant]
     Indication: MULTIPLE SCLEROSIS
     Dates: start: 20030204, end: 20080601
  3. COPAXONE [Concomitant]
     Dates: start: 20101124

REACTIONS (3)
  - Urinary tract infection [Recovered/Resolved]
  - Hallucination [Recovered/Resolved]
  - Memory impairment [Recovered/Resolved]
